FAERS Safety Report 7579479-2 (Version None)
Quarter: 2011Q2

REPORT INFORMATION
  Report Type: 
  Country: None (occurrence: None)
  Receive Date: 20110629
  Receipt Date: 20091220
  Transmission Date: 20111010
  Serious: Yes (Death, Other)
  Sender: FDA-Public Use
  Company Number: US-BAYER-200943145NA

PATIENT
  Age: 67 Year
  Sex: Female
  Weight: 91 kg

DRUGS (13)
  1. ZAROXOLYN [Concomitant]
     Dosage: 20 MG, ONCE
     Route: 042
     Dates: start: 20060602
  2. VANCOMYCIN [Concomitant]
  3. NIASPAN [Concomitant]
     Dosage: 1000 MG
     Route: 048
  4. TRASYLOL [Suspect]
     Indication: CORONARY ARTERY BYPASS
     Route: 042
     Dates: start: 20060601
  5. LIPITOR [Concomitant]
     Dosage: 10 MG, QD
     Route: 048
  6. ALBUMIN (HUMAN) [Concomitant]
     Dosage: 100 ML, ONCE
     Route: 042
     Dates: start: 20060602
  7. ACETYLSALICYLIC ACID SRT [Concomitant]
     Dosage: 325 MG, QD
     Route: 048
  8. TOPROL-XL [Concomitant]
     Dosage: 100 MG, QID
     Route: 048
  9. BUMEX [Concomitant]
     Dosage: 2 MG, ONCE
     Route: 042
     Dates: start: 20060602
  10. PLAVIX [Concomitant]
     Dosage: 75 MG
     Route: 048
  11. ALDACTONE [Concomitant]
     Dosage: 50 MG, ONCE
     Route: 042
     Dates: start: 20060602
  12. PROCRIT [Suspect]
     Dosage: 10,000 DAILY
     Route: 058
  13. ISOSORBIDE MONONITRATE [Concomitant]
     Dosage: 60 MG, QD
     Route: 048

REACTIONS (9)
  - PAIN [None]
  - UNEVALUABLE EVENT [None]
  - FEAR [None]
  - INJURY [None]
  - ANXIETY [None]
  - DEPRESSION [None]
  - DEATH [None]
  - RENAL FAILURE [None]
  - ANHEDONIA [None]
